FAERS Safety Report 8587885 (Version 2)
Quarter: 2013Q2

REPORT INFORMATION
  Report Type: Spontaneous
  Country: US (occurrence: US)
  Receive Date: 20120531
  Receipt Date: 20130617
  Transmission Date: 20140414
  Serious: Yes (Hospitalization, Congenital Anomaly, Other)
  Sender: FDA-Public Use
  Company Number: US-PFIZER INC-2012128740

PATIENT
  Age: 3 Month
  Sex: Male

DRUGS (3)
  1. ZOLOFT [Suspect]
     Indication: DEPRESSION
     Dosage: 50 MG, 1X/DAY
     Route: 064
     Dates: start: 20020425
  2. ZOLOFT [Suspect]
     Dosage: UNK
     Route: 064
     Dates: start: 20020606
  3. SUDAFED [Concomitant]
     Dosage: UNK
     Route: 064
     Dates: start: 20020606

REACTIONS (6)
  - Maternal exposure timing unspecified [Unknown]
  - Congenital aortic anomaly [Unknown]
  - Atrial septal defect [Unknown]
  - Dilatation atrial [Unknown]
  - Oesophageal stenosis [Unknown]
  - Urethral meatus stenosis [Unknown]
